FAERS Safety Report 6380162-X (Version None)
Quarter: 2009Q3

REPORT INFORMATION
  Report Type: 
  Country: None (occurrence: None)
  Receive Date: 20090929
  Receipt Date: 20090925
  Transmission Date: 20100115
  Serious: Yes (Life-Threatening, Hospitalization, Disabling, Other)
  Sender: FDA-Public Use
  Company Number: HR-JNJFOC-20090907449

PATIENT
  Sex: Male

DRUGS (4)
  1. RISPOLEPT [Suspect]
     Indication: SCHIZOPHRENIA
     Route: 065
     Dates: start: 20090101
  2. RISPOLEPT CONSTA [Suspect]
     Indication: SCHIZOPHRENIA
     Route: 065
     Dates: start: 20090301
  3. TEGRETOL [Concomitant]
     Route: 065
  4. NOZINAN [Concomitant]
     Dosage: 1/2, 0, 1/2
     Route: 065

REACTIONS (2)
  - MUSCLE RIGIDITY [None]
  - PNEUMONIA [None]
